FAERS Safety Report 22251691 (Version 2)
Quarter: 2023Q2

REPORT INFORMATION
  Report Type: Spontaneous
  Country: US (occurrence: US)
  Receive Date: 20230425
  Receipt Date: 20230610
  Transmission Date: 20230721
  Serious: Yes (Other)
  Sender: FDA-Public Use
  Company Number: US-ALXN-A202305508

PATIENT
  Sex: Female
  Weight: 52.154 kg

DRUGS (1)
  1. SOLIRIS [Suspect]
     Active Substance: ECULIZUMAB
     Indication: Paroxysmal nocturnal haemoglobinuria
     Dosage: 900 MG, Q2W
     Route: 042
     Dates: start: 20211201

REACTIONS (2)
  - Haemolysis [Unknown]
  - Anaemia [Unknown]

NARRATIVE: CASE EVENT DATE: 20230322
